FAERS Safety Report 6293194-7 (Version None)
Quarter: 2009Q3

REPORT INFORMATION
  Report Type: 
  Country: None (occurrence: None)
  Receive Date: 20090731
  Receipt Date: 20090728
  Transmission Date: 20100115
  Serious: No
  Sender: FDA-Public Use
  Company Number: JP-EISAI INC.-E2090-00804-SPO-JP

PATIENT
  Age: 20 Year
  Sex: Male

DRUGS (5)
  1. EXCEGRAN [Suspect]
     Indication: EPILEPSY
     Route: 048
     Dates: start: 20090701, end: 20090721
  2. MAGMITT [Concomitant]
     Indication: DRUG USE FOR UNKNOWN INDICATION
     Route: 048
  3. FAMOGAST [Concomitant]
     Route: 048
  4. TEGRETOL [Concomitant]
     Route: 048
  5. MYSLEE [Concomitant]
     Dosage: UNKNOWN
     Route: 048

REACTIONS (2)
  - PLATELET COUNT DECREASED [None]
  - WHITE BLOOD CELL COUNT DECREASED [None]
